FAERS Safety Report 25505922 (Version 4)
Quarter: 2025Q3

REPORT INFORMATION
  Report Type: Spontaneous
  Country: CO (occurrence: CO)
  Receive Date: 20250702
  Receipt Date: 20250908
  Transmission Date: 20251021
  Serious: No
  Sender: PFIZER
  Company Number: CO-PFIZER INC-PV202500078122

PATIENT
  Age: 12 Year
  Sex: Male

DRUGS (1)
  1. GENOTROPIN [Suspect]
     Active Substance: SOMATROPIN
     Indication: Short stature
     Dosage: 1.0, DAILY
     Route: 058
     Dates: start: 20250404, end: 20250625

REACTIONS (5)
  - Device mechanical issue [Recovered/Resolved]
  - Wrong technique in device usage process [Recovered/Resolved]
  - Drug dose omission by device [Recovered/Resolved]
  - Pain in extremity [Unknown]
  - Off label use [Unknown]

NARRATIVE: CASE EVENT DATE: 20250625
